FAERS Safety Report 12169937 (Version 1)
Quarter: 2016Q1

REPORT INFORMATION
  Report Type: Spontaneous
  Country: FR (occurrence: FR)
  Receive Date: 20160310
  Receipt Date: 20160310
  Transmission Date: 20160526
  Serious: Yes (Hospitalization)
  Sender: FDA-Public Use
  Company Number: FR-HOSPIRA-3196375

PATIENT
  Age: 64 Year
  Sex: Female
  Weight: 64.3 kg

DRUGS (1)
  1. OXALIPLATINE HOSPIRA [Suspect]
     Active Substance: OXALIPLATIN
     Indication: PANCREATIC NEUROENDOCRINE TUMOUR METASTATIC
     Route: 042
     Dates: start: 201601

REACTIONS (2)
  - Chills [Recovered/Resolved]
  - Hyperthermia [Recovered/Resolved]

NARRATIVE: CASE EVENT DATE: 20160128
